FAERS Safety Report 14625233 (Version 1)
Quarter: 2018Q1

REPORT INFORMATION
  Report Type: Spontaneous
  Country: US (occurrence: US)
  Receive Date: 20180312
  Receipt Date: 20180312
  Transmission Date: 20180509
  Serious: Yes (Hospitalization, Other)
  Sender: FDA-Public Use
  Company Number: US-ENDO PHARMACEUTICALS INC-2017-009133

PATIENT
  Age: 41 Year
  Sex: Male
  Weight: 92.06 kg

DRUGS (2)
  1. TESTIM [Suspect]
     Active Substance: TESTOSTERONE
     Indication: ANDROGEN REPLACEMENT THERAPY
     Dosage: UNK UNKNOWN, ONCE DAILY
     Route: 065
     Dates: start: 201012, end: 201307
  2. TYLOX [Concomitant]
     Active Substance: ACETAMINOPHEN\OXYCODONE HYDROCHLORIDE
     Indication: BACK PAIN
     Dosage: UNK UNKNOWN, PRN
     Route: 065

REACTIONS (2)
  - Pulmonary fibrosis [Unknown]
  - Myocardial infarction [Unknown]

NARRATIVE: CASE EVENT DATE: 2012
